FAERS Safety Report 6062856-9 (Version None)
Quarter: 2009Q1

REPORT INFORMATION
  Report Type: 
  Country: None (occurrence: None)
  Receive Date: 20090129
  Receipt Date: 20090121
  Transmission Date: 20090719
  Serious: Yes (Life-Threatening)
  Sender: FDA-Public Use
  Company Number: 2006JP001463

PATIENT
  Age: 51 Year
  Sex: Male
  Weight: 56 kg

DRUGS (19)
  1. FUNGUARD(MICAFUNGIN) INJECTION [Suspect]
     Indication: PNEUMONIA
     Dosage: 150 MG, UID/QD, IV DRIP
     Route: 041
     Dates: start: 20060508, end: 20060509
  2. FUNGUARD(MICAFUNGIN) INJECTION [Suspect]
     Indication: PNEUMONIA
     Dosage: 150 MG, UID/QD, IV DRIP
     Route: 041
     Dates: start: 20060518, end: 20060518
  3. VFEND [Concomitant]
  4. VFEND (VORICONAZOLE) TABLET [Concomitant]
  5. TARGOCID [Concomitant]
  6. CIPROXAN (CIPROFLOXACIN HYDROCHLORIDE) INJECTION [Concomitant]
  7. MEROPEN (MEROPENEM) INJECTION [Concomitant]
  8. OMEPRAL INJECTION [Concomitant]
  9. NEUART INJECTION [Concomitant]
  10. ORGARAN [Concomitant]
  11. HUMULIN (INSULIN HUMAN INJECTION, ISOPHANE) INJECTION [Concomitant]
  12. SOLU-MEDROL [Concomitant]
  13. GASTER (FAMOTIDINE) INJECTION, UNKNOWN [Concomitant]
  14. PREDOPA (DOPAMINE HYDROCHLORIDE) INJECTION [Concomitant]
  15. FENTANEST (FENTANYL CITRATE) INJECTION [Concomitant]
  16. DIPRIVAN [Concomitant]
  17. EPIQUICK (EPINEPHRINE) INJECTION [Concomitant]
  18. IDARUBICIN (IDARUBICIN) FORMULATION UNKNOWN [Concomitant]
  19. CYTARABINE (CYTARABINE) FORMULATION UNKNOWN [Concomitant]

REACTIONS (18)
  - BLINDNESS [None]
  - BRADYCARDIA [None]
  - CARDIAC ARREST [None]
  - CONTINUOUS HAEMODIAFILTRATION [None]
  - HAEMODIALYSIS [None]
  - HYPOTENSION [None]
  - INTRAVASCULAR HAEMOLYSIS [None]
  - LOSS OF CONSCIOUSNESS [None]
  - MITRAL VALVE INCOMPETENCE [None]
  - MYOCARDIAL INFARCTION [None]
  - MYOCARDIAL ISCHAEMIA [None]
  - PULSE ABSENT [None]
  - RENAL FAILURE ACUTE [None]
  - SHOCK [None]
  - STRESS ULCER [None]
  - TRICUSPID VALVE INCOMPETENCE [None]
  - URTICARIA [None]
  - VENTRICULAR TACHYCARDIA [None]
